FAERS Safety Report 4888710-3 (Version None)
Quarter: 2005Q4

REPORT INFORMATION
  Report Type: 
  Country: None (occurrence: None)
  Receive Date: 20051215
  Receipt Date: 20041210
  Transmission Date: 20060501
  Serious: Yes (Other)
  Sender: FDA-Public Use
  Company Number: 2004113954

PATIENT
  Sex: Female
  Weight: 66.2252 kg

DRUGS (6)
  1. BEXTRA [Suspect]
     Indication: OSTEOARTHRITIS
     Dosage: SEE IMAGE
     Dates: end: 20041101
  2. BEXTRA [Suspect]
     Indication: OSTEOARTHRITIS
     Dosage: SEE IMAGE
     Dates: start: 20040101
  3. ZOLOFT [Suspect]
     Indication: BRUXISM
     Dosage: 50 MG (50 MG, DAILY)
     Dates: start: 20040501, end: 20040101
  4. NAPROXEN SODIUM [Suspect]
     Indication: ARTHRITIS
     Dates: start: 20040101, end: 20040101
  5. IBUPROFEN [Concomitant]
  6. LEVOTHYROXINE SODIUM [Concomitant]

REACTIONS (4)
  - ABDOMINAL PAIN UPPER [None]
  - DIARRHOEA [None]
  - DYSPEPSIA [None]
  - WEIGHT DECREASED [None]
